FAERS Safety Report 18898889 (Version 1)
Quarter: 2021Q1

REPORT INFORMATION
  Report Type: Spontaneous
  Country: US (occurrence: US)
  Receive Date: 20210216
  Receipt Date: 20210216
  Transmission Date: 20210420
  Serious: Yes (Hospitalization, Other)
  Sender: FDA-Public Use
  Company Number: US-SA-2021SA033739

PATIENT
  Age: 27 Year
  Sex: Female

DRUGS (1)
  1. ALEMTUZUMAB [Suspect]
     Active Substance: ALEMTUZUMAB
     Indication: RELAPSING-REMITTING MULTIPLE SCLEROSIS
     Dosage: INFUSION
     Route: 041
     Dates: start: 202001

REACTIONS (14)
  - Oxygen saturation decreased [Recovering/Resolving]
  - Bundle branch block right [Recovering/Resolving]
  - Flushing [Recovering/Resolving]
  - Bradycardia [Recovering/Resolving]
  - Productive cough [Recovering/Resolving]
  - Hypotension [Recovering/Resolving]
  - Myocarditis [Recovering/Resolving]
  - Palpitations [Recovering/Resolving]
  - Myocardial oedema [Recovered/Resolved]
  - Cardiogenic shock [Recovering/Resolving]
  - Pulmonary oedema [Recovering/Resolving]
  - Dyspnoea [Recovering/Resolving]
  - Tachycardia [Recovering/Resolving]
  - Abdominal pain upper [Recovering/Resolving]

NARRATIVE: CASE EVENT DATE: 2020
